FAERS Safety Report 23412323 (Version 2)
Quarter: 2024Q3

REPORT INFORMATION
  Report Type: Spontaneous
  Country: US (occurrence: US)
  Receive Date: 20240117
  Receipt Date: 20240716
  Transmission Date: 20241016
  Serious: No
  Sender: NOVO NORDISK
  Company Number: US-NOVOPROD-1088282

PATIENT
  Sex: Female

DRUGS (2)
  1. OZEMPIC [Suspect]
     Active Substance: SEMAGLUTIDE
     Indication: Diabetes mellitus
     Dosage: 0.25MG ONCE A WEEK
     Route: 058
     Dates: start: 20230324
  2. OZEMPIC [Suspect]
     Active Substance: SEMAGLUTIDE
     Dosage: 0.5 MG ONCE A WEEK
     Route: 058

REACTIONS (4)
  - Anxiety [Unknown]
  - Insomnia [Unknown]
  - Headache [Unknown]
  - Constipation [Unknown]
